FAERS Safety Report 20054786 (Version 1)
Quarter: 2021Q4

REPORT INFORMATION
  Report Type: Spontaneous
  Country: US (occurrence: None)
  Receive Date: 20211110
  Receipt Date: 20211110
  Transmission Date: 20220303
  Serious: No
  Sender: FDA-Public Use
  Company Number: US-FRESENIUS KABI-FK202112197

PATIENT
  Age: 47 Year
  Sex: Female
  Weight: 68 kg

DRUGS (1)
  1. CISATRACURIUM BESYLATE [Suspect]
     Active Substance: CISATRACURIUM BESYLATE
     Indication: Paralysis
     Dosage: 200MG/20ML VIALS (200 MG IN 0.9 PERCENT 250 ML INFUSION (TOTAL VOLUME 270 ML), 37.5 MG/HR (50.6 ML/H
     Route: 042
     Dates: start: 20211031, end: 20211031

REACTIONS (1)
  - Therapeutic product effect decreased [Unknown]
